FAERS Safety Report 23282062 (Version 1)
Quarter: 2023Q4

REPORT INFORMATION
  Report Type: Spontaneous
  Country: US (occurrence: None)
  Receive Date: 20231208
  Receipt Date: 20231208
  Transmission Date: 20240110
  Serious: Yes (Other)
  Sender: FDA-Public Use
  Company Number: None

PATIENT
  Age: 62 Year
  Sex: Female
  Weight: 72 kg

DRUGS (1)
  1. LEQVIO [Suspect]
     Active Substance: INCLISIRAN SODIUM
     Indication: Blood cholesterol increased
     Dates: start: 20230314, end: 20230614

REACTIONS (6)
  - Hepatic enzyme increased [None]
  - Attention deficit hyperactivity disorder [None]
  - Confusional state [None]
  - Bronchitis [None]
  - Ear infection [None]
  - Weight increased [None]

NARRATIVE: CASE EVENT DATE: 20231207
